FAERS Safety Report 20006072 (Version 1)
Quarter: 2021Q4

REPORT INFORMATION
  Report Type: Spontaneous
  Country: CH (occurrence: CH)
  Receive Date: 20211028
  Receipt Date: 20211028
  Transmission Date: 20220303
  Serious: Yes (Other)
  Sender: FDA-Public Use
  Company Number: CH-TOLMAR, INC.-21CH029569

PATIENT
  Sex: Male

DRUGS (1)
  1. ELIGARD [Suspect]
     Active Substance: LEUPROLIDE ACETATE
     Indication: Prostate cancer
     Dosage: UNK
     Dates: start: 201604, end: 201812

REACTIONS (4)
  - Prostate cancer [Unknown]
  - Prostatic specific antigen increased [Unknown]
  - Hot flush [Unknown]
  - Fatigue [Unknown]

NARRATIVE: CASE EVENT DATE: 20160701
